FAERS Safety Report 6533045-6 (Version None)
Quarter: 2010Q1

REPORT INFORMATION
  Report Type: 
  Country: None (occurrence: None)
  Receive Date: 20100111
  Receipt Date: 20091230
  Transmission Date: 20100710
  Serious: Yes (Hospitalization)
  Sender: FDA-Public Use
  Company Number: IN-PFIZER INC-2009316227

PATIENT
  Sex: Male

DRUGS (3)
  1. DOLONEX [Suspect]
     Indication: BACK PAIN
     Dosage: 1 ML, 1X/DAY
     Route: 030
     Dates: start: 20091227, end: 20091227
  2. PARACETAMOL [Suspect]
     Dosage: UNK
     Route: 030
     Dates: start: 20091227
  3. DEXONA [Suspect]
     Dosage: UNK
     Route: 030
     Dates: start: 20091227

REACTIONS (3)
  - ABDOMINAL DISCOMFORT [None]
  - BURNING SENSATION [None]
  - RASH ERYTHEMATOUS [None]
